FAERS Safety Report 13836580 (Version 1)
Quarter: 2017Q3

REPORT INFORMATION
  Report Type: Spontaneous
  Country: US (occurrence: US)
  Receive Date: 20170804
  Receipt Date: 20170804
  Transmission Date: 20171127
  Serious: No
  Sender: FDA-Public Use
  Company Number: US-ROCHE-1021612

PATIENT
  Sex: Male

DRUGS (11)
  1. PRIMIDONE. [Concomitant]
     Active Substance: PRIMIDONE
  2. ASPIRIN. [Concomitant]
     Active Substance: ASPIRIN
  3. LISINOPRIL. [Concomitant]
     Active Substance: LISINOPRIL
  4. BONIVA [Suspect]
     Active Substance: IBANDRONATE SODIUM
     Indication: OSTEOPOROSIS
     Dosage: TOOK FOR 4-5 MONTHS, APRIL TO JULY
     Route: 048
     Dates: start: 20110405, end: 20111213
  5. TOPAMAX [Concomitant]
     Active Substance: TOPIRAMATE
  6. DOMPERIDONE [Concomitant]
     Active Substance: DOMPERIDONE
  7. BONIVA [Suspect]
     Active Substance: IBANDRONATE SODIUM
     Dosage: RESTARTED THERAPY
     Route: 065
     Dates: start: 20111210
  8. MEVACOR [Concomitant]
     Active Substance: LOVASTATIN
  9. FLOMAX [Concomitant]
     Active Substance: TAMSULOSIN HYDROCHLORIDE
  10. LEVOXYL [Concomitant]
     Active Substance: LEVOTHYROXINE SODIUM
  11. LUPRON [Concomitant]
     Active Substance: LEUPROLIDE ACETATE
     Indication: PROSTATE CANCER

REACTIONS (4)
  - Discomfort [Unknown]
  - Oesophageal pain [Unknown]
  - Tooth disorder [Unknown]
  - Prostatic specific antigen increased [Unknown]
